FAERS Safety Report 4776502-5 (Version None)
Quarter: 2005Q3

REPORT INFORMATION
  Report Type: 
  Country: None (occurrence: None)
  Receive Date: 20050915
  Receipt Date: 20050912
  Transmission Date: 20060218
  Serious: Yes (Hospitalization)
  Sender: FDA-Public Use
  Company Number: 2005125792

PATIENT
  Age: 44 Year
  Sex: Male

DRUGS (2)
  1. ATORVASTATIN CALCIUM [Suspect]
     Indication: HYPERCHOLESTEROLAEMIA
     Dosage: 40 MG (40 MG, 1 IN 1 D), ORAL
     Route: 048
     Dates: start: 20050601, end: 20050612
  2. JARSIN (HYPERICUM EXTRACT) [Suspect]
     Indication: DEPRESSION
     Dosage: ORAL
     Route: 048
     Dates: end: 20050612

REACTIONS (7)
  - ARTHRALGIA [None]
  - HAEMATURIA [None]
  - JOINT EFFUSION [None]
  - LEUKOCYTOCLASTIC VASCULITIS [None]
  - PAIN IN EXTREMITY [None]
  - PALPABLE PURPURA [None]
  - PROTEINURIA [None]
